FAERS Safety Report 7558940-0 (Version None)
Quarter: 2011Q2

REPORT INFORMATION
  Report Type: 
  Country: None (occurrence: None)
  Receive Date: 20110613
  Receipt Date: 20110601
  Transmission Date: 20111010
  Serious: Yes (Other)
  Sender: FDA-Public Use
  Company Number: 1000021137

PATIENT
  Age: 66 Year
  Sex: Male
  Weight: 83 kg

DRUGS (12)
  1. PREDNISOLONE (PREDNISOLONE) (20 MILLIGRAM) (PREDNISOLONE) [Concomitant]
  2. ROFLUMILAST (ROFLUMILAST) (TABLETS) [Suspect]
     Indication: CHRONIC OBSTRUCTIVE PULMONARY DISEASE
     Dosage: 1 DF (1 DOSAGE FORMS, 1 IN 1 D)
     Dates: start: 20110225, end: 20110406
  3. THEOPHYLLINE (THEOPHYLLINE) (200 MILLIGRAM) (THEOPHYLLINE) [Concomitant]
  4. PREDNISOLONE [Concomitant]
  5. KCL (RETARD (POTASSIUM CHLORIDE) (POTASSIUM CHLORIDE) [Concomitant]
  6. SPIRIVA (TIOTROPIUM BROMIDE) (TIOTROPIUM BROMIDE) [Concomitant]
  7. ASS (ACETYLSALICYLIC ACID) (ACETYLSALICYLIC ACID) [Concomitant]
  8. BERODUAL (IPRATROPIUM, FENOTEROL) (IPRATROPIUM, FENOTEROL) [Concomitant]
  9. SPIRIVA (TIOTROPIUM BROMIDE) (TIOTROPIUM BROMIDE) [Concomitant]
  10. ATACAND PLUS (CANDESARTAN) (32 MILLIGRAM) (CANDESARTAN) [Concomitant]
  11. AMBROXOL (AMBROXOL) (30 MILLIGRAM) (AMBROXOL) [Concomitant]
  12. FORMOTEROL (FORMOTEROL) (FORMOTEROL) [Concomitant]

REACTIONS (1)
  - SLEEP DISORDER [None]
